FAERS Safety Report 5066118-8 (Version None)
Quarter: 2006Q3

REPORT INFORMATION
  Report Type: 
  Country: None (occurrence: None)
  Receive Date: 20060725
  Receipt Date: 20060717
  Transmission Date: 20061208
  Serious: Yes (Hospitalization)
  Sender: FDA-Public Use
  Company Number: 200610667BFR

PATIENT
  Age: 45 Year
  Sex: Female

DRUGS (17)
  1. NIMOTOP [Suspect]
     Dosage: INTRAVENOUS
     Route: 042
     Dates: start: 20060619, end: 20060624
  2. IOMERON (IOMEPROL) [Suspect]
     Indication: ANGIOGRAM
     Dosage: 80 ML, TOTAL DAILY, INTRAVENOUS
     Route: 042
     Dates: start: 20060619
  3. VISIPAQUE [Suspect]
     Indication: THERAPEUTIC EMBOLISATION
     Dosage: 150 ML, TOTAL DAILY, INTRAVENOUS
     Route: 042
     Dates: start: 20060619
  4. DEPAKENE [Suspect]
     Dosage: INTRAVENOUS
     Route: 042
     Dates: start: 20060619, end: 20060623
  5. MORPHINE [Concomitant]
  6. HEPARIN [Concomitant]
  7. LOVENOX [Concomitant]
  8. ORGARAN [Concomitant]
  9. ACETAMINOPHEN [Concomitant]
  10. ACUPAN [Concomitant]
  11. ZOPHREN [Concomitant]
  12. OMEPRAZOLE [Concomitant]
  13. CERNEVIT [VIT C, VIT H, COCARBOX, D3, B12, DEXPANTH, B9, B3, B6, RETIN [Concomitant]
  14. DIPRIVAN [Concomitant]
  15. MANNITOL [Concomitant]
  16. TRANXENE [Concomitant]
  17. ALMOGRAN [Concomitant]

REACTIONS (4)
  - ACUTE GENERALISED EXANTHEMATOUS PUSTULOSIS [None]
  - HYDROCEPHALUS [None]
  - MENINGORRHAGIA [None]
  - RUPTURED CEREBRAL ANEURYSM [None]
